FAERS Safety Report 24390130 (Version 7)
Quarter: 2024Q4

REPORT INFORMATION
  Report Type: Spontaneous
  Country: DE (occurrence: DE)
  Receive Date: 20241003
  Receipt Date: 20241217
  Transmission Date: 20250115
  Serious: Yes (Other)
  Sender: ALKEM
  Company Number: None

PATIENT
  Age: 23 Year
  Sex: Female

DRUGS (16)
  1. AZATHIOPRINE [Suspect]
     Active Substance: AZATHIOPRINE
     Indication: Lupus nephritis
     Dosage: UNK
     Route: 065
  2. MYCOPHENOLATE MOFETIL [Suspect]
     Active Substance: MYCOPHENOLATE MOFETIL
     Indication: Lupus nephritis
     Dosage: UNK
     Route: 065
  3. ANIFROLUMAB [Suspect]
     Active Substance: ANIFROLUMAB
     Indication: Lupus nephritis
     Dosage: UNK
     Route: 065
  4. BELIMUMAB [Suspect]
     Active Substance: BELIMUMAB
     Indication: Lupus nephritis
     Dosage: UNK
     Route: 065
  5. DAPSONE [Suspect]
     Active Substance: DAPSONE
     Indication: Lupus nephritis
     Dosage: UNK
     Route: 065
  6. HUMAN IMMUNOGLOBULIN G [Suspect]
     Active Substance: HUMAN IMMUNOGLOBULIN G
     Indication: Lupus nephritis
     Dosage: UNK
     Route: 042
  7. HYDROXYCHLOROQUINE [Suspect]
     Active Substance: HYDROXYCHLOROQUINE
     Indication: Lupus nephritis
     Dosage: UNK
     Route: 048
  8. LUPKYNIS [Suspect]
     Active Substance: VOCLOSPORIN
     Indication: Lupus nephritis
     Dosage: 7.9 MILLIGRAM
     Route: 048
  9. LUPKYNIS [Suspect]
     Active Substance: VOCLOSPORIN
     Dosage: UNK (RECHALLENGE)
     Route: 065
  10. METHOTREXATE [Suspect]
     Active Substance: METHOTREXATE
     Indication: Lupus nephritis
     Dosage: UNK
     Route: 065
  11. PREDNISOLONE [Suspect]
     Active Substance: PREDNISOLONE
     Indication: Lupus nephritis
     Dosage: UNK
     Route: 048
  12. CORTISONE [Concomitant]
     Active Substance: CORTISONE
     Indication: Product used for unknown indication
     Dosage: UNK
     Route: 065
  13. TECLISTAMAB [Concomitant]
     Active Substance: TECLISTAMAB
     Indication: Lupus nephritis
     Dosage: 0.03 MILLIGRAM/KILOGRAM
     Route: 058
  14. TECLISTAMAB [Concomitant]
     Active Substance: TECLISTAMAB
     Dosage: 0.06 MILLIGRAM/KILOGRAM
     Route: 058
  15. TECLISTAMAB [Concomitant]
     Active Substance: TECLISTAMAB
     Dosage: 0.08 MILLIGRAM/KILOGRAM
     Route: 058
  16. TECLISTAMAB [Concomitant]
     Active Substance: TECLISTAMAB
     Dosage: 1.5 MILLIGRAM/KILOGRAM AT WEEKS AND 5
     Route: 058

REACTIONS (6)
  - Autoimmune haemolytic anaemia [Recovered/Resolved]
  - Dermatitis bullous [Recovered/Resolved]
  - Polyarthritis [Recovered/Resolved]
  - Lupus nephritis [Recovered/Resolved]
  - Therapy non-responder [Unknown]
  - Off label use [Unknown]
